FAERS Safety Report 19735099 (Version 1)
Quarter: 2021Q3

REPORT INFORMATION
  Report Type: Spontaneous
  Country: US (occurrence: US)
  Receive Date: 20210823
  Receipt Date: 20210823
  Transmission Date: 20211014
  Serious: No
  Sender: FDA-Public Use
  Company Number: US-ASTRAZENECA-2021A650444

PATIENT
  Sex: Female
  Weight: 65.8 kg

DRUGS (1)
  1. LYNPARZA [Suspect]
     Active Substance: OLAPARIB
     Route: 048
     Dates: start: 202101

REACTIONS (4)
  - Bone pain [Not Recovered/Not Resolved]
  - Product distribution issue [Unknown]
  - Product dose omission issue [Recovered/Resolved]
  - Malaise [Unknown]
